FAERS Safety Report 21287631 (Version 4)
Quarter: 2022Q4

REPORT INFORMATION
  Report Type: Report from Study
  Country: US (occurrence: US)
  Receive Date: 20220902
  Receipt Date: 20221019
  Transmission Date: 20230112
  Serious: Yes (Other)
  Sender: FDA-Public Use
  Company Number: US-ABBVIE-22K-163-4523392-00

PATIENT
  Sex: Male

DRUGS (2)
  1. IMBRUVICA [Suspect]
     Active Substance: IBRUTINIB
     Indication: Mantle cell lymphoma
     Dosage: FORM STRENGTH 560 MG
     Route: 048
     Dates: start: 202112, end: 20220821
  2. IMBRUVICA [Suspect]
     Active Substance: IBRUTINIB
     Indication: Mantle cell lymphoma
     Dosage: FORM STRENGTH 560 MG
     Route: 048
     Dates: start: 202112

REACTIONS (6)
  - Ankle fracture [Unknown]
  - Sleep disorder [Unknown]
  - Tooth infection [Unknown]
  - Back pain [Unknown]
  - Toothache [Unknown]
  - Rash [Unknown]
